FAERS Safety Report 15806239 (Version 14)
Quarter: 2022Q2

REPORT INFORMATION
  Report Type: Spontaneous
  Country: US (occurrence: US)
  Receive Date: 20190110
  Receipt Date: 20220503
  Transmission Date: 20220721
  Serious: No
  Sender: FDA-Public Use
  Company Number: US-PFIZER INC-2018313698

PATIENT
  Age: 51 Year
  Sex: Male
  Weight: 113 kg

DRUGS (7)
  1. LYRICA [Suspect]
     Active Substance: PREGABALIN
     Indication: Pain
     Dosage: 150 MG, 1X/DAY (1 (ONE) CAPSULE BY MOUTH AT BEDTIME)
     Route: 048
  2. LYRICA [Suspect]
     Active Substance: PREGABALIN
     Indication: Neuropathy peripheral
     Dosage: 350 MG, DAILY [150 MG AT BED TIME AND THEN I TAKE A 100 MG IN THE MORNING AND 100 MG IN A MIDAFTERN]
     Route: 048
  3. LYRICA [Suspect]
     Active Substance: PREGABALIN
     Indication: Visual impairment
     Dosage: UNK, (STATED THE 150 I TAKE AT BEDTIME)
  4. LYRICA [Suspect]
     Active Substance: PREGABALIN
     Indication: Back disorder
     Dosage: 100 MG, 2X/DAY (1 CAPSULE IN AM AND 1 CAP MID-AFTERNOON)
     Route: 048
  5. LYRICA [Suspect]
     Active Substance: PREGABALIN
     Dosage: 150 MG, 1X/DAY (1 (ONE) CAPSULE (150 MG) AT BEDTIME/DISPENSE: 90 CAPSULE, DAYS SUPPLY: 90)
     Route: 048
  6. LYRICA [Suspect]
     Active Substance: PREGABALIN
     Dosage: 350 MG, DAILY (100MG TWICE DAILY AT BREAK AND LUNCH 150MG AT BEDTIME)
     Dates: start: 2018
  7. HYDROCHLOROTHIAZIDE [Concomitant]
     Active Substance: HYDROCHLOROTHIAZIDE
     Indication: Hypertension
     Dosage: 25 MG, 1X/DAY
     Route: 048

REACTIONS (5)
  - Drug withdrawal syndrome [Unknown]
  - Sleep disorder [Unknown]
  - Anxiety [Unknown]
  - Intentional product misuse [Unknown]
  - Product prescribing error [Unknown]
